FAERS Safety Report 8204425-8 (Version None)
Quarter: 2012Q1

REPORT INFORMATION
  Report Type: 
  Country: None (occurrence: None)
  Receive Date: 20120309
  Receipt Date: 20120228
  Transmission Date: 20120608
  Serious: Yes (Other)
  Sender: FDA-Public Use
  Company Number: 1201-011

PATIENT

DRUGS (5)
  1. FLAXSEED (LINUM USITATISSIMUM SEED OIL) [Concomitant]
  2. TRUSOPT [Concomitant]
  3. LUMIGAN [Concomitant]
  4. COUMADIN [Concomitant]
  5. EYLEA [Suspect]
     Indication: AGE-RELATED MACULAR DEGENERATION
     Dosage: 2 MG, 1 IN 1 M, INTRAVITREAL
     Dates: start: 20111216

REACTIONS (11)
  - VITREOUS FLOATERS [None]
  - VITREOUS OPACITIES [None]
  - VITREOUS HAEMORRHAGE [None]
  - EYE PAIN [None]
  - ANXIETY [None]
  - RETINAL ARTERY EMBOLISM [None]
  - CONJUNCTIVAL HYPERAEMIA [None]
  - VITREOUS DISORDER [None]
  - EYE INFLAMMATION [None]
  - ANTERIOR CHAMBER CELL [None]
  - IRITIS [None]
